FAERS Safety Report 8022209-0 (Version None)
Quarter: 2012Q1

REPORT INFORMATION
  Report Type: 
  Country: None (occurrence: None)
  Receive Date: 20120104
  Receipt Date: 20111227
  Transmission Date: 20120608
  Serious: Yes (Other)
  Sender: FDA-Public Use
  Company Number: US-BAYER-2011-063503

PATIENT
  Age: 29 Year
  Sex: Female
  Weight: 52.154 kg

DRUGS (10)
  1. ACETAMINOPHEN/DP-HYDRAM HCL [Concomitant]
     Dosage: 25 MG, UNK
  2. CITALOPRAM HYDROBROMIDE [Concomitant]
     Dosage: 20 MG, UNK
  3. FERROUS SULFATE TAB [Concomitant]
     Dosage: 325 MG, UNK
  4. PERCOCET [Concomitant]
     Indication: PAIN
     Dosage: UNK
     Dates: start: 20100203
  5. FERROUS SULFATE TAB [Concomitant]
     Dosage: 65 MG, UNK
  6. PRENATAL VITAMINS [VIT C,B5,B12,D2,B3,B6,RETINOL PALMIT,B2,B1 MONO [Concomitant]
  7. YAZ [Suspect]
     Indication: PREMENSTRUAL SYNDROME
  8. YAZ [Suspect]
     Indication: ACNE
     Dosage: UNK
     Dates: start: 20090301, end: 20100217
  9. MOTRIN [Concomitant]
     Dosage: UNK
     Dates: start: 20101216
  10. ACETAMINOPHEN/DP-HYDRAM HCL [Concomitant]
     Dosage: 500 MG, UNK

REACTIONS (9)
  - GALLBLADDER INJURY [None]
  - PAIN [None]
  - CHOLECYSTITIS [None]
  - INJURY [None]
  - SCAR [None]
  - GENERAL PHYSICAL HEALTH DETERIORATION [None]
  - BILIARY DYSKINESIA [None]
  - ANXIETY [None]
  - EMOTIONAL DISTRESS [None]
